FAERS Safety Report 20548825 (Version 1)
Quarter: 2022Q1

REPORT INFORMATION
  Report Type: Spontaneous
  Country: JP (occurrence: JP)
  Receive Date: 20220303
  Receipt Date: 20220303
  Transmission Date: 20220424
  Serious: Yes (Other)
  Sender: FDA-Public Use
  Company Number: JP-CELGENE-JPN-20220208048

PATIENT
  Age: 70 Year
  Sex: Male

DRUGS (2)
  1. ABRAXANE [Suspect]
     Active Substance: PACLITAXEL
     Indication: Metastatic gastric cancer
     Route: 041
     Dates: start: 20180307, end: 20180307
  2. ABRAXANE [Suspect]
     Active Substance: PACLITAXEL
     Route: 041
     Dates: start: 20180423, end: 20180730

REACTIONS (2)
  - Ileus [Unknown]
  - Cholangitis [Unknown]

NARRATIVE: CASE EVENT DATE: 20180312
